FAERS Safety Report 9279470 (Version 1)
Quarter: 2013Q2

REPORT INFORMATION
  Report Type: Spontaneous
  Country: US (occurrence: US)
  Receive Date: 20130508
  Receipt Date: 20130508
  Transmission Date: 20140414
  Serious: No
  Sender: FDA-Public Use
  Company Number: US-009507513-1305USA003204

PATIENT
  Sex: Male

DRUGS (2)
  1. SAPHRIS [Suspect]
     Indication: BIPOLAR DISORDER
     Dosage: 5 MG, HS
     Route: 060
  2. VALIUM [Concomitant]
     Indication: ANXIETY
     Dosage: UNK
     Route: 048

REACTIONS (2)
  - Migraine [Recovered/Resolved]
  - Arthralgia [Recovered/Resolved]
